FAERS Safety Report 19258679 (Version 1)
Quarter: 2021Q2

REPORT INFORMATION
  Report Type: Report from Study
  Country: PL (occurrence: PL)
  Receive Date: 20210514
  Receipt Date: 20210514
  Transmission Date: 20210717
  Serious: Yes (Hospitalization)
  Sender: FDA-Public Use
  Company Number: PL-ROCHE-2825562

PATIENT
  Age: 80 Year
  Sex: Male

DRUGS (56)
  1. ACP?196 [Suspect]
     Active Substance: ACALABRUTINIB
     Route: 065
     Dates: start: 20170112, end: 20170208
  2. ACP?196 [Suspect]
     Active Substance: ACALABRUTINIB
     Route: 065
     Dates: start: 20200529, end: 20200820
  3. DEXAMETHASONE. [Concomitant]
     Active Substance: DEXAMETHASONE
     Indication: PREMEDICATION
  4. LORISTA [Concomitant]
     Active Substance: LOSARTAN POTASSIUM
     Indication: HYPERTENSION
  5. METOPROLOL. [Concomitant]
     Active Substance: METOPROLOL
     Indication: PREMEDICATION
  6. CLEXANE [Concomitant]
     Active Substance: ENOXAPARIN SODIUM
     Indication: PREMEDICATION
  7. ACP?196 [Suspect]
     Active Substance: ACALABRUTINIB
     Route: 065
     Dates: start: 20161004, end: 20161018
  8. CODEINE [Concomitant]
     Active Substance: CODEINE
     Indication: PREMEDICATION
  9. ASA [Concomitant]
     Active Substance: ASPIRIN
     Indication: PREMEDICATION
  10. GLYCERYL TRINITRATE [Concomitant]
     Active Substance: NITROGLYCERIN
     Indication: PREMEDICATION
  11. AZOPT [Concomitant]
     Active Substance: BRINZOLAMIDE
     Indication: PREMEDICATION
  12. ACP?196 [Suspect]
     Active Substance: ACALABRUTINIB
     Route: 065
     Dates: start: 20161117, end: 20161214
  13. ACP?196 [Suspect]
     Active Substance: ACALABRUTINIB
     Route: 065
     Dates: start: 20170309, end: 20170522
  14. BISEPTOL [Concomitant]
     Active Substance: SULFAMETHOXAZOLE\TRIMETHOPRIM
     Indication: PREMEDICATION
  15. CLOPIDOGREL [Concomitant]
     Active Substance: CLOPIDOGREL BISULFATE
     Indication: ATRIAL FIBRILLATION
  16. TRITACE [Concomitant]
     Active Substance: RAMIPRIL
     Indication: PREMEDICATION
  17. ACP?196 [Suspect]
     Active Substance: ACALABRUTINIB
     Indication: CHRONIC LYMPHOCYTIC LEUKAEMIA
     Route: 065
     Dates: start: 20160920, end: 20161003
  18. ACP?196 [Suspect]
     Active Substance: ACALABRUTINIB
     Route: 065
     Dates: start: 20161102, end: 20161116
  19. ACP?196 [Suspect]
     Active Substance: ACALABRUTINIB
     Route: 065
     Dates: start: 20190628, end: 20190919
  20. ACP?196 [Suspect]
     Active Substance: ACALABRUTINIB
     Route: 065
     Dates: start: 20190920, end: 20191212
  21. ACP?196 [Suspect]
     Active Substance: ACALABRUTINIB
     Route: 065
     Dates: start: 20191213, end: 20200305
  22. NEVANAC [Concomitant]
     Active Substance: NEPAFENAC
     Indication: PREMEDICATION
  23. FUROSEMIDUM [Concomitant]
     Active Substance: FUROSEMIDE
     Indication: PREMEDICATION
  24. IODIXANOL. [Concomitant]
     Active Substance: IODIXANOL
     Indication: PREMEDICATION
  25. OBINUTUZUMAB. [Suspect]
     Active Substance: OBINUTUZUMAB
     Indication: CHRONIC LYMPHOCYTIC LEUKAEMIA
     Route: 042
     Dates: start: 20161019, end: 20161019
  26. ACP?196 [Suspect]
     Active Substance: ACALABRUTINIB
     Route: 065
     Dates: start: 20170209, end: 20170308
  27. ACP?196 [Suspect]
     Active Substance: ACALABRUTINIB
     Route: 065
     Dates: start: 20200821, end: 20201112
  28. CYCLONAMINE [Concomitant]
     Active Substance: ETHAMSYLATE
     Indication: PREMEDICATION
  29. PAMYL [Concomitant]
     Indication: PREMEDICATION
  30. DILURAN [Concomitant]
     Indication: PREMEDICATION
  31. IPP [OMEPRAZOLE] [Concomitant]
     Active Substance: OMEPRAZOLE
     Indication: PREMEDICATION
  32. OBINUTUZUMAB. [Suspect]
     Active Substance: OBINUTUZUMAB
     Route: 042
     Dates: start: 20170309, end: 20170309
  33. ACP?196 [Suspect]
     Active Substance: ACALABRUTINIB
     Route: 065
     Dates: start: 20190404, end: 20190627
  34. ACP?196 [Suspect]
     Active Substance: ACALABRUTINIB
     Route: 065
     Dates: start: 20200306, end: 20200528
  35. ACP?196 [Suspect]
     Active Substance: ACALABRUTINIB
     Route: 065
     Dates: start: 20201113, end: 20210204
  36. DEXOFTYAL [Concomitant]
     Indication: PREMEDICATION
  37. ACETAMINOPHEN. [Concomitant]
     Active Substance: ACETAMINOPHEN
     Indication: PREMEDICATION
  38. APO TAMIS [Concomitant]
     Indication: BENIGN PROSTATIC HYPERPLASIA
  39. ACARD [Concomitant]
     Indication: MYOCARDIAL ISCHAEMIA
  40. TULIP (POLAND) [Concomitant]
     Indication: PREMEDICATION
  41. HEPARIN [Concomitant]
     Active Substance: HEPARIN SODIUM
     Indication: PREMEDICATION
  42. PANTOPRAZOLE [Concomitant]
     Active Substance: PANTOPRAZOLE
     Indication: PREMEDICATION
  43. ACP?196 [Suspect]
     Active Substance: ACALABRUTINIB
     Route: 065
     Dates: start: 20161019, end: 20161101
  44. ACP?196 [Suspect]
     Active Substance: ACALABRUTINIB
     Route: 065
     Dates: start: 20170523, end: 20170607
  45. ACP?196 [Suspect]
     Active Substance: ACALABRUTINIB
     Route: 065
     Dates: start: 20190110, end: 20190403
  46. CLEMASTINUM [Concomitant]
     Active Substance: CLEMASTINE FUMARATE
     Indication: PREMEDICATION
  47. LIDOCAINE. [Concomitant]
     Active Substance: LIDOCAINE
     Indication: PREMEDICATION
  48. ATORVASTATIN [Concomitant]
     Active Substance: ATORVASTATIN
     Indication: PREMEDICATION
  49. TOBRADEX [Concomitant]
     Active Substance: DEXAMETHASONE\TOBRAMYCIN
     Indication: PREMEDICATION
  50. APO FINA [Concomitant]
     Active Substance: FINASTERIDE
     Indication: BENIGN PROSTATIC HYPERPLASIA
  51. ACP?196 [Suspect]
     Active Substance: ACALABRUTINIB
     Route: 065
     Dates: start: 20161215, end: 20170111
  52. ACP?196 [Suspect]
     Active Substance: ACALABRUTINIB
     Route: 065
     Dates: start: 20210205
  53. ELIQUIS [Concomitant]
     Active Substance: APIXABAN
     Indication: ATRIAL FIBRILLATION
  54. EXACYL [Concomitant]
     Active Substance: TRANEXAMIC ACID
     Indication: PREMEDICATION
  55. PRADAX [Concomitant]
     Active Substance: DABIGATRAN ETEXILATE MESYLATE
     Indication: ATRIAL FIBRILLATION
  56. BETO ZK [Concomitant]
     Active Substance: METOPROLOL SUCCINATE
     Indication: ATRIAL FIBRILLATION

REACTIONS (1)
  - Haemorrhage [Recovered/Resolved]

NARRATIVE: CASE EVENT DATE: 20210224
